FAERS Safety Report 4282684-4 (Version None)
Quarter: 2004Q1

REPORT INFORMATION
  Report Type: 
  Country: None (occurrence: None)
  Receive Date: 20040130
  Receipt Date: 20030218
  Transmission Date: 20041129
  Serious: No
  Sender: FDA-Public Use
  Company Number: US-BRISTOL-MYERS SQUIBB COMPANY-12189502

PATIENT
  Age: 53 Year
  Sex: Female
  Weight: 54 kg

DRUGS (5)
  1. SERZONE [Suspect]
     Indication: FIBROMYALGIA
     Route: 048
     Dates: start: 20030216, end: 20030216
  2. MULTI-VITAMIN [Concomitant]
  3. ZYRTEC [Concomitant]
  4. PREMARIN [Concomitant]
  5. VIOXX [Concomitant]

REACTIONS (4)
  - DIZZINESS [None]
  - FEELING COLD [None]
  - HEADACHE [None]
  - PARAESTHESIA [None]
